FAERS Safety Report 12906863 (Version 2)
Quarter: 2016Q4

REPORT INFORMATION
  Report Type: Spontaneous
  Country: DE (occurrence: DE)
  Receive Date: 20161103
  Receipt Date: 20161117
  Transmission Date: 20170207
  Serious: Yes (Hospitalization)
  Sender: FDA-Public Use
  Company Number: DE-SA-2016SA198561

PATIENT
  Age: 40 Year
  Sex: Male

DRUGS (2)
  1. AUBAGIO [Suspect]
     Active Substance: TERIFLUNOMIDE
     Indication: MULTIPLE SCLEROSIS
     Route: 048
     Dates: start: 20160708, end: 20160915
  2. CEFUROXIME. [Concomitant]
     Active Substance: CEFUROXIME
     Route: 048
     Dates: start: 20160929, end: 201610

REACTIONS (13)
  - General physical health deterioration [Unknown]
  - Cough [Unknown]
  - C-reactive protein increased [Unknown]
  - Vomiting [Unknown]
  - Anaemia [Unknown]
  - Thyroiditis subacute [Unknown]
  - Upper respiratory tract infection [Unknown]
  - Oropharyngeal pain [Unknown]
  - Dizziness [Unknown]
  - Hyperthyroidism [Recovered/Resolved]
  - Night sweats [Unknown]
  - Liver disorder [Unknown]
  - Hepatic enzyme increased [Unknown]

NARRATIVE: CASE EVENT DATE: 20161004
